FAERS Safety Report 5450166-X (Version None)
Quarter: 2007Q3

REPORT INFORMATION
  Report Type: 
  Country: None (occurrence: None)
  Receive Date: 20070912
  Receipt Date: 20070903
  Transmission Date: 20080115
  Serious: Yes (Congenital Anomaly)
  Sender: FDA-Public Use
  Company Number: D0054457A

PATIENT

DRUGS (1)
  1. MALARONE [Suspect]
     Indication: MALARIA PROPHYLAXIS
     Route: 048
     Dates: start: 20070101, end: 20070101

REACTIONS (2)
  - DRUG EXPOSURE BEFORE PREGNANCY [None]
  - MULTIPLE CONGENITAL ABNORMALITIES [None]
